FAERS Safety Report 8882036 (Version 2)
Quarter: 2012Q4

REPORT INFORMATION
  Report Type: 
  Country: US (occurrence: None)
  Receive Date: 20121105
  Receipt Date: 20121214
  Transmission Date: 20130627
  Serious: Yes (Hospitalization)
  Sender: FDA-Public Use
  Company Number: None

PATIENT
  Age: 43 Year
  Sex: Female
  Weight: 61.24 kg

DRUGS (2)
  1. METHYLPREDNISOLONE [Suspect]
  2. KETOROLAC INJECTION FROM AMERIDOSE [Suspect]

REACTIONS (2)
  - Meningitis [None]
  - Cognitive disorder [None]
